FAERS Safety Report 21113888 (Version 5)
Quarter: 2022Q3

REPORT INFORMATION
  Report Type: Report from Study
  Country: CA (occurrence: CA)
  Receive Date: 20220721
  Receipt Date: 20220824
  Transmission Date: 20221026
  Serious: Yes (Other)
  Sender: FDA-Public Use
  Company Number: CA-002147023-NVSC2022CA158007

PATIENT

DRUGS (11)
  1. DICLOFENAC [Suspect]
     Active Substance: DICLOFENAC
     Indication: Product used for unknown indication
     Dosage: UNK
     Route: 048
  2. CELEBREX [Concomitant]
     Active Substance: CELECOXIB
     Indication: Product used for unknown indication
     Dosage: UNK
     Route: 048
     Dates: start: 2020, end: 2021
  3. MISOPROSTOL [Concomitant]
     Active Substance: MISOPROSTOL
     Indication: Product used for unknown indication
     Dosage: UNK
     Route: 048
  4. TYLENOL ARTHRITIS PAIN [Concomitant]
     Active Substance: ACETAMINOPHEN
     Indication: Product used for unknown indication
     Dosage: 2 DF, TID (2 DOSAGE FORM, TID )
     Route: 048
     Dates: start: 20200729
  5. ARTHROTEC [Concomitant]
     Active Substance: DICLOFENAC SODIUM\MISOPROSTOL
     Indication: Product used for unknown indication
     Dosage: UNK
     Route: 065
  6. CELECOXIB [Concomitant]
     Active Substance: CELECOXIB
     Indication: Product used for unknown indication
     Dosage: 1 DF, QD (1 DOSAGE FORM, QD)
     Dates: start: 20200729
  7. VALTREX [Concomitant]
     Active Substance: VALACYCLOVIR HYDROCHLORIDE
     Indication: Oral herpes
     Dosage: UNK
     Route: 065
  8. CYCLOBENZAPRINE [Concomitant]
     Active Substance: CYCLOBENZAPRINE
     Indication: Product used for unknown indication
     Dosage: 1 DF, TID (1 DOSAGE FORM, TID)
     Route: 048
     Dates: start: 20200729
  9. NAPROXEN [Concomitant]
     Active Substance: NAPROXEN
     Indication: Product used for unknown indication
     Dosage: 1 DF, BID (1 DOSAGE FORM, BID)
     Route: 048
     Dates: start: 20201207
  10. NAPROXEN [Concomitant]
     Active Substance: NAPROXEN
     Dosage: 1 DF, BID (1 DOSAGE FORM, BID)
     Route: 048
     Dates: start: 202012
  11. HYDROMORPHONE [Concomitant]
     Active Substance: HYDROMORPHONE
     Indication: Product used for unknown indication
     Dosage: 1 DF (1 DOSAGE FORM, PRN)
     Route: 048
     Dates: start: 20201207

REACTIONS (21)
  - Ankylosing spondylitis [Unknown]
  - Inflammatory bowel disease [Unknown]
  - Psoriatic arthropathy [Unknown]
  - Haematochezia [Unknown]
  - Abdominal discomfort [Unknown]
  - Intervertebral disc protrusion [Unknown]
  - Synovitis [Unknown]
  - Granuloma [Unknown]
  - Pain [Unknown]
  - General physical health deterioration [Unknown]
  - Gastrointestinal disorder [Unknown]
  - Dysphonia [Unknown]
  - Contusion [Unknown]
  - Drug intolerance [Unknown]
  - Feeling abnormal [Unknown]
  - Abdominal distension [Unknown]
  - Fatigue [Unknown]
  - Fluid retention [Unknown]
  - Scar [Unknown]
  - Quality of life decreased [Unknown]
  - Drug ineffective [Unknown]

NARRATIVE: CASE EVENT DATE: 20220708
